FAERS Safety Report 9652431 (Version 5)
Quarter: 2014Q1

REPORT INFORMATION
  Report Type: Spontaneous
  Country: US (occurrence: US)
  Receive Date: 20131029
  Receipt Date: 20140303
  Transmission Date: 20141002
  Serious: Yes (Hospitalization, Other)
  Sender: FDA-Public Use
  Company Number: US-PFIZER INC-2013306020

PATIENT
  Age: 64 Year
  Sex: Female
  Weight: 45.35 kg

DRUGS (3)
  1. CELEBREX [Suspect]
     Indication: OSTEOARTHRITIS
     Dosage: 200 MG, 2X/DAY
  2. LYRICA [Suspect]
     Indication: FIBROMYALGIA
     Dosage: 225 MG, 2X/DAY
     Dates: start: 2011
  3. OMEPRAZOLE [Concomitant]
     Indication: GASTROOESOPHAGEAL REFLUX DISEASE
     Dosage: 40 MG, 1X/DAY

REACTIONS (8)
  - Diverticulitis [Unknown]
  - Intestinal perforation [Unknown]
  - Deep vein thrombosis [Recovering/Resolving]
  - Clostridium difficile colitis [Not Recovered/Not Resolved]
  - Haemorrhage [Unknown]
  - Anaemia [Unknown]
  - Gastrointestinal haemorrhage [Unknown]
  - Malaise [Unknown]
